FAERS Safety Report 7967738-0 (Version None)
Quarter: 2011Q4

REPORT INFORMATION
  Report Type: 
  Country: None (occurrence: None)
  Receive Date: 20111209
  Receipt Date: 20111209
  Transmission Date: 20120403
  Serious: No
  Sender: FDA-Public Use
  Company Number: None

PATIENT
  Age: 9 Year
  Sex: Male
  Weight: 36.287 kg

DRUGS (1)
  1. INTUNIV [Suspect]
     Dosage: 1V
     Route: 048
     Dates: start: 20110526, end: 20111203

REACTIONS (1)
  - HYPERSOMNIA [None]
